FAERS Safety Report 15229331 (Version 1)
Quarter: 2018Q3

REPORT INFORMATION
  Report Type: Spontaneous
  Country: US (occurrence: US)
  Receive Date: 20180707
  Receipt Date: 20180707
  Transmission Date: 20181010
  Serious: Yes (Hospitalization)
  Sender: FDA-Public Use
  Company Number: None

PATIENT
  Age: 33 Year
  Sex: Female
  Weight: 85.5 kg

DRUGS (5)
  1. SYNTHROID [Concomitant]
     Active Substance: LEVOTHYROXINE SODIUM
  2. CONTRAVE [Suspect]
     Active Substance: BUPROPION HYDROCHLORIDE\NALTREXONE HYDROCHLORIDE
     Indication: WEIGHT CONTROL
     Dosage: ?          QUANTITY:90 TABLET(S);?
     Route: 048
     Dates: start: 20180703, end: 20180704
  3. JOLESSA [Concomitant]
     Active Substance: ETHINYL ESTRADIOL\LEVONORGESTREL
  4. ZETIA [Concomitant]
     Active Substance: EZETIMIBE
  5. METFORMIN [Concomitant]
     Active Substance: METFORMIN HYDROCHLORIDE

REACTIONS (3)
  - Nausea [None]
  - Apparent death [None]
  - Vomiting [None]

NARRATIVE: CASE EVENT DATE: 20180705
